FAERS Safety Report 17545108 (Version 1)
Quarter: 2020Q1

REPORT INFORMATION
  Report Type: Spontaneous
  Country: IT (occurrence: IT)
  Receive Date: 20200316
  Receipt Date: 20200316
  Transmission Date: 20200409
  Serious: Yes (Death)
  Sender: FDA-Public Use
  Company Number: IT-CHEPLA-C20200991_01

PATIENT
  Age: 35 Year
  Sex: Female

DRUGS (2)
  1. GCV (GANCICLOVIR) [Suspect]
     Active Substance: GANCICLOVIR
     Indication: ANTIVIRAL TREATMENT
     Route: 065
  2. IFN [Suspect]
     Active Substance: INTERFERON
     Indication: ANTIVIRAL TREATMENT
     Route: 065

REACTIONS (1)
  - Interstitial lung disease [Fatal]
